FAERS Safety Report 4444457-9 (Version None)
Quarter: 2004Q3

REPORT INFORMATION
  Report Type: 
  Country: None (occurrence: None)
  Receive Date: 20040902
  Receipt Date: 20040820
  Transmission Date: 20050211
  Serious: Yes (Hospitalization, Other)
  Sender: FDA-Public Use
  Company Number: HQWYE239612AUG04

PATIENT
  Age: 62 Year
  Sex: Female
  Weight: 91.71 kg

DRUGS (2)
  1. RAPAMUNE [Suspect]
     Indication: PROPHYLAXIS AGAINST TRANSPLANT REJECTION
     Dosage: SEE IMAGE
     Dates: start: 20030530, end: 20040801
  2. RAPAMUNE [Suspect]
     Indication: PROPHYLAXIS AGAINST TRANSPLANT REJECTION
     Dosage: SEE IMAGE
     Dates: start: 20040801

REACTIONS (8)
  - BLOOD GLUCOSE INCREASED [None]
  - DIABETES MELLITUS INADEQUATE CONTROL [None]
  - DIABETIC FOOT [None]
  - DIABETIC NEUROPATHIC ULCER [None]
  - IMMUNOSUPPRESSANT DRUG LEVEL INCREASED [None]
  - IMPAIRED GASTRIC EMPTYING [None]
  - NEUROPATHIC ARTHROPATHY [None]
  - WHITE BLOOD CELL COUNT DECREASED [None]
